FAERS Safety Report 8959736 (Version 1)
Quarter: 2012Q4

REPORT INFORMATION
  Report Type: 
  Country: TR (occurrence: TR)
  Receive Date: 20121212
  Receipt Date: 20121212
  Transmission Date: 20130627
  Serious: Yes (Other)
  Sender: FDA-Public Use
  Company Number: TR-SP-2012-11730

PATIENT

DRUGS (2)
  1. IMMUCYST [Suspect]
     Indication: BLADDER CANCER
     Route: 043
  2. ISONIAZIDE [Concomitant]
     Indication: PROPHYLAXIS
     Dosage: 2*100 mg day of Immucyst and 2 days after
     Route: 048

REACTIONS (3)
  - Bladder cancer recurrent [Unknown]
  - Dysuria [Unknown]
  - Haematuria [Unknown]
